FAERS Safety Report 4743781-X (Version None)
Quarter: 2005Q3

REPORT INFORMATION
  Report Type: 
  Country: None (occurrence: None)
  Receive Date: 20050809
  Receipt Date: 20041229
  Transmission Date: 20060218
  Serious: Yes (Hospitalization, Other)
  Sender: FDA-Public Use
  Company Number: 2005BI006614

PATIENT
  Age: 47 Year
  Sex: Male

DRUGS (1)
  1. AVONEX [Suspect]
     Indication: MULTIPLE SCLEROSIS
     Dosage: 30 UG;QW;IM
     Route: 030
     Dates: start: 20011001, end: 20020501

REACTIONS (9)
  - CONDITION AGGRAVATED [None]
  - COORDINATION ABNORMAL [None]
  - CORONARY ARTERY ATHEROSCLEROSIS [None]
  - DIFFICULTY IN WALKING [None]
  - ENCEPHALOPATHY [None]
  - LEUKOENCEPHALOPATHY [None]
  - MUSCLE SPASTICITY [None]
  - OPTIC NERVE DISORDER [None]
  - SUBACUTE SCLEROSING PANENCEPHALITIS [None]
